FAERS Safety Report 14807709 (Version 1)
Quarter: 2018Q2

REPORT INFORMATION
  Report Type: Spontaneous
  Country: ES (occurrence: ES)
  Receive Date: 20180425
  Receipt Date: 20180425
  Transmission Date: 20180711
  Serious: Yes (Death)
  Sender: FDA-Public Use
  Company Number: ES-MYLANLABS-2018M1028127

PATIENT
  Age: 26 Year
  Sex: Male
  Weight: 106.5 kg

DRUGS (2)
  1. SECALIP 145 MG COMPRIMIDOS RECUBIERTOS CON PEL?CULA [Suspect]
     Active Substance: FENOFIBRATE
     Indication: HYPERTRIGLYCERIDAEMIA
     Dosage: 145 MG, QD
     Route: 048
     Dates: start: 20160721
  2. VOKANAMET 50MG/1000MG COMPRIMIDOS RECUBIERTOS CON PELICULA [Suspect]
     Active Substance: CANAGLIFLOZIN\METFORMIN HYDROCHLORIDE
     Indication: DIABETES MELLITUS INADEQUATE CONTROL
     Dosage: 1 DF, BID
     Route: 048
     Dates: start: 20170721

REACTIONS (2)
  - Metabolic acidosis [Fatal]
  - Pancreatitis [Fatal]

NARRATIVE: CASE EVENT DATE: 20180412
